FAERS Safety Report 21513573 (Version 1)
Quarter: 2022Q4

REPORT INFORMATION
  Report Type: Spontaneous
  Country: US (occurrence: US)
  Receive Date: 20221027
  Receipt Date: 20221027
  Transmission Date: 20230113
  Serious: Yes (Hospitalization, Other)
  Sender: FDA-Public Use
  Company Number: US-BAYER-2022A146562

PATIENT
  Age: 87 Year
  Sex: Male

DRUGS (23)
  1. ADEMPAS [Suspect]
     Active Substance: RIOCIGUAT
     Indication: Pulmonary hypertension
     Dosage: 2.5 MG, TID
     Route: 048
     Dates: start: 20181231
  2. SPIRIVA RESPIMAT [Concomitant]
     Active Substance: TIOTROPIUM BROMIDE
  3. POTASSIUM CHLORIDE [Concomitant]
     Active Substance: POTASSIUM CHLORIDE
  4. METOPROLOL [Concomitant]
     Active Substance: METOPROLOL
  5. FUROSEMIDE [Concomitant]
     Active Substance: FUROSEMIDE
  6. WARFARIN [Concomitant]
     Active Substance: WARFARIN
  7. CULTURELLE [Concomitant]
     Active Substance: LACTOBACILLUS RHAMNOSUS
  8. COLCHICINE [Concomitant]
     Active Substance: COLCHICINE
  9. XALATAN [Concomitant]
     Active Substance: LATANOPROST
  10. ALLOPURINOL [Concomitant]
     Active Substance: ALLOPURINOL
  11. ALBUTEROL SULFATE [Concomitant]
     Active Substance: ALBUTEROL SULFATE
  12. OXYBUTYNIN [Concomitant]
     Active Substance: OXYBUTYNIN
  13. PREDNISONE [Concomitant]
     Active Substance: PREDNISONE
  14. WIXELA INHUB [Concomitant]
     Active Substance: FLUTICASONE PROPIONATE\SALMETEROL XINAFOATE
  15. TRUSOPT [Concomitant]
     Active Substance: DORZOLAMIDE HYDROCHLORIDE
  16. HIPREX [METHENAMINE HIPPURATE] [Concomitant]
  17. ALPHAGAN P [Concomitant]
     Active Substance: BRIMONIDINE TARTRATE
  18. DICLOFENAC [Concomitant]
     Active Substance: DICLOFENAC
  19. MONTELUKAST [Concomitant]
     Active Substance: MONTELUKAST SODIUM
  20. MAGNESIUM OXIDE [Concomitant]
     Active Substance: MAGNESIUM OXIDE
  21. FERROUS SULFATE [Concomitant]
     Active Substance: FERROUS SULFATE
  22. ASCORBIC ACID [Concomitant]
     Active Substance: ASCORBIC ACID
  23. CALCIUM CARBONATE [Concomitant]
     Active Substance: CALCIUM CARBONATE

REACTIONS (3)
  - Cor pulmonale [None]
  - Cardiac failure congestive [None]
  - Urinary tract infection [None]

NARRATIVE: CASE EVENT DATE: 20220922
